FAERS Safety Report 10831129 (Version 1)
Quarter: 2015Q1

REPORT INFORMATION
  Report Type: Report from Study
  Country: US (occurrence: US)
  Receive Date: 20150219
  Receipt Date: 20150219
  Transmission Date: 20150721
  Serious: No
  Sender: FDA-Public Use
  Company Number: US-ABBVIE-14P-163-1191930-00

PATIENT
  Age: 66 Year
  Sex: Female

DRUGS (7)
  1. BUPRENORPHINE HCL [Concomitant]
     Active Substance: BUPRENORPHINE HYDROCHLORIDE
     Indication: PAIN
     Dosage: AT NIGHT
  2. OXYCODONE [Concomitant]
     Active Substance: OXYCODONE
     Indication: PRODUCT USED FOR UNKNOWN INDICATION
  3. HUMIRA [Suspect]
     Active Substance: ADALIMUMAB
     Indication: CROHN^S DISEASE
  4. PLAQUENIL [Concomitant]
     Active Substance: HYDROXYCHLOROQUINE SULFATE
     Indication: RHEUMATOID ARTHRITIS
  5. CELEBREX [Suspect]
     Active Substance: CELECOXIB
     Indication: PRODUCT USED FOR UNKNOWN INDICATION
     Route: 065
     Dates: end: 20140219
  6. ACYCLOVIR. [Concomitant]
     Active Substance: ACYCLOVIR
     Indication: PROPHYLAXIS
     Dates: start: 2014
  7. HUMIRA [Suspect]
     Active Substance: ADALIMUMAB
     Indication: RHEUMATOID ARTHRITIS
     Route: 065
     Dates: start: 20131223

REACTIONS (27)
  - Musculoskeletal stiffness [Not Recovered/Not Resolved]
  - Sputum discoloured [Recovering/Resolving]
  - Injection site pruritus [Recovered/Resolved]
  - Lymphadenopathy [Not Recovered/Not Resolved]
  - Injection site urticaria [Recovered/Resolved]
  - Genital herpes [Recovered/Resolved]
  - Neck pain [Recovering/Resolving]
  - Chills [Recovering/Resolving]
  - Wrong technique in drug usage process [Not Recovered/Not Resolved]
  - Genital lesion [Recovered/Resolved]
  - Endodontic procedure [Recovering/Resolving]
  - Blood cholesterol increased [Unknown]
  - Gastric disorder [Recovered/Resolved]
  - Toothache [Recovering/Resolving]
  - Wrong technique in drug usage process [Unknown]
  - Incorrect dose administered [Unknown]
  - Productive cough [Recovering/Resolving]
  - Injection site erythema [Recovered/Resolved]
  - Oropharyngeal pain [Recovering/Resolving]
  - Injection site pain [Not Recovered/Not Resolved]
  - Arthralgia [Not Recovered/Not Resolved]
  - Muscle spasms [Unknown]
  - Incorrect dose administered [Unknown]
  - Injection site pruritus [Not Recovered/Not Resolved]
  - Injection site erythema [Not Recovered/Not Resolved]
  - Lower respiratory tract infection [Recovering/Resolving]
  - Injection site pain [Recovered/Resolved]

NARRATIVE: CASE EVENT DATE: 201312
